FAERS Safety Report 12731054 (Version 1)
Quarter: 2016Q3

REPORT INFORMATION
  Report Type: Spontaneous
  Country: US (occurrence: US)
  Receive Date: 20160912
  Receipt Date: 20160912
  Transmission Date: 20161109
  Serious: Yes (Death)
  Sender: FDA-Public Use
  Company Number: US-ACCORD-043850

PATIENT
  Age: 55 Year
  Sex: Female

DRUGS (8)
  1. GEMCITABINE/GEMCITABINE HYDROCHLORIDE [Suspect]
     Active Substance: GEMCITABINE\GEMCITABINE HYDROCHLORIDE
     Indication: DUCTAL ADENOCARCINOMA OF PANCREAS
     Dates: start: 2005
  2. IRINOTECAN [Suspect]
     Active Substance: IRINOTECAN
     Indication: DUCTAL ADENOCARCINOMA OF PANCREAS
     Dates: start: 200809
  3. CAPECITABINE. [Suspect]
     Active Substance: CAPECITABINE
     Indication: DUCTAL ADENOCARCINOMA OF PANCREAS
     Dates: start: 201006
  4. FLUOROURACIL. [Suspect]
     Active Substance: FLUOROURACIL
     Indication: DUCTAL ADENOCARCINOMA OF PANCREAS
     Dates: start: 2006
  5. FOLINIC ACID [Concomitant]
     Active Substance: LEUCOVORIN
     Indication: DUCTAL ADENOCARCINOMA OF PANCREAS
     Dates: start: 2006
  6. BEVACIZUMAB [Suspect]
     Active Substance: BEVACIZUMAB
     Indication: DUCTAL ADENOCARCINOMA OF PANCREAS
     Dates: start: 2006
  7. OXALIPLATIN. [Suspect]
     Active Substance: OXALIPLATIN
     Indication: DUCTAL ADENOCARCINOMA OF PANCREAS
     Dates: start: 2006
  8. MITOMYCIN. [Suspect]
     Active Substance: MITOMYCIN
     Indication: DUCTAL ADENOCARCINOMA OF PANCREAS
     Dates: start: 201006

REACTIONS (1)
  - Myelodysplastic syndrome [Fatal]
